FAERS Safety Report 14216018 (Version 2)
Quarter: 2017Q4

REPORT INFORMATION
  Report Type: Spontaneous
  Country: US (occurrence: US)
  Receive Date: 20171122
  Receipt Date: 20171218
  Transmission Date: 20180321
  Serious: Yes (Life-Threatening, Other)
  Sender: FDA-Public Use
  Company Number: US-PFIZER INC-2017499675

PATIENT
  Age: 53 Year
  Sex: Female
  Weight: 82.63 kg

DRUGS (2)
  1. LYRICA [Suspect]
     Active Substance: PREGABALIN
     Indication: NEUROPATHY PERIPHERAL
     Dosage: 75 MG, 1X/DAY
     Route: 048
     Dates: start: 20171011, end: 20171018
  2. GABAPENTIN. [Concomitant]
     Active Substance: GABAPENTIN
     Dosage: 300 MG, 3X/DAY (ONE TABLET BY MOUTH THREE TIMES DAILY)
     Route: 048

REACTIONS (12)
  - Loss of consciousness [Recovered/Resolved]
  - Road traffic accident [Unknown]
  - Somnolence [Recovered/Resolved]
  - Contusion [Unknown]
  - Antinuclear antibody positive [Unknown]
  - Syncope [Recovered/Resolved]
  - Overweight [Unknown]
  - Confusional state [Recovered/Resolved]
  - Drug ineffective for unapproved indication [Unknown]
  - Feeling abnormal [Unknown]
  - Electrocardiogram low voltage [Unknown]
  - Neck pain [Unknown]

NARRATIVE: CASE EVENT DATE: 20171104
